FAERS Safety Report 12172140 (Version 2)
Quarter: 2016Q2

REPORT INFORMATION
  Report Type: Report from Study
  Country: US (occurrence: US)
  Receive Date: 20160311
  Receipt Date: 20160504
  Transmission Date: 20160815
  Serious: Yes (Hospitalization)
  Sender: FDA-Public Use
  Company Number: US-ACTELION-A-NJ2016-132536

PATIENT
  Age: 56 Year
  Sex: Male

DRUGS (7)
  1. TRACLEER [Suspect]
     Active Substance: BOSENTAN
     Indication: PULMONARY ARTERIAL HYPERTENSION
     Dosage: 125 MG, BID
     Route: 048
     Dates: start: 201211
  2. ADCIRCA [Concomitant]
     Active Substance: TADALAFIL
     Dosage: 40 MG, UNK
     Route: 048
     Dates: start: 201307
  3. REMODULIN [Concomitant]
     Active Substance: TREPROSTINIL
     Dosage: 60 NG/KG, UNK
     Dates: start: 201508
  4. POTASSIUM CHLORIDE. [Concomitant]
     Active Substance: POTASSIUM CHLORIDE
     Dosage: 20 MEQ, BID
     Route: 048
  5. COUMADIN [Concomitant]
     Active Substance: WARFARIN SODIUM
  6. TORSEMIDE. [Concomitant]
     Active Substance: TORSEMIDE
     Dosage: 60 MG, UNK
  7. AMITRIPTYLINE [Concomitant]
     Active Substance: AMITRIPTYLINE
     Dosage: 100 MG, QPM

REACTIONS (4)
  - Vena cava filter insertion [Unknown]
  - Deep vein thrombosis [Recovering/Resolving]
  - Lower respiratory tract infection [Unknown]
  - Peripheral swelling [Recovering/Resolving]

NARRATIVE: CASE EVENT DATE: 20160209
